FAERS Safety Report 11539230 (Version 1)
Quarter: 2015Q3

REPORT INFORMATION
  Report Type: Spontaneous
  Country: US (occurrence: US)
  Receive Date: 20150923
  Receipt Date: 20150923
  Transmission Date: 20151125
  Serious: Yes (Other)
  Sender: FDA-Public Use
  Company Number: US-BAYER-2015-422745

PATIENT
  Age: 37 Year
  Sex: Female

DRUGS (1)
  1. SKYLA [Suspect]
     Active Substance: LEVONORGESTREL
     Indication: CONTRACEPTION
     Dosage: 14 MCG/24HR, CONT
     Route: 015
     Dates: start: 20150629, end: 20150710

REACTIONS (4)
  - Device dislocation [None]
  - Abdominal pain lower [Not Recovered/Not Resolved]
  - Pelvic pain [None]
  - Complication of device insertion [None]

NARRATIVE: CASE EVENT DATE: 2015
